FAERS Safety Report 14568474 (Version 1)
Quarter: 2018Q1

REPORT INFORMATION
  Report Type: Spontaneous
  Country: US (occurrence: US)
  Receive Date: 20180223
  Receipt Date: 20180223
  Transmission Date: 20180509
  Serious: Yes (Other)
  Sender: FDA-Public Use
  Company Number: US-TEVA-2018-US-853605

PATIENT
  Sex: Female

DRUGS (1)
  1. PROAIR HFA [Suspect]
     Active Substance: ALBUTEROL SULFATE
     Indication: DYSPNOEA
     Dosage: 2 PUFFS EVERY 4 HOURS
     Route: 065

REACTIONS (4)
  - Blood glucose decreased [Recovered/Resolved]
  - Cold sweat [Unknown]
  - Hyperhidrosis [Unknown]
  - Feeling cold [Unknown]

NARRATIVE: CASE EVENT DATE: 20180125
